FAERS Safety Report 4729365-8 (Version None)
Quarter: 2005Q3

REPORT INFORMATION
  Report Type: 
  Country: None (occurrence: None)
  Receive Date: 20050729
  Receipt Date: 20050721
  Transmission Date: 20060218
  Serious: Yes (Hospitalization, Other)
  Sender: FDA-Public Use
  Company Number: IL-ABBOTT-05P-082-0306379-00

PATIENT
  Sex: Female
  Weight: 52 kg

DRUGS (2)
  1. KALETRA [Suspect]
     Indication: HIV INFECTION
     Route: 048
     Dates: start: 20050601
  2. LAMIVUDINE + ZIDOVUDINE [Concomitant]
     Indication: HIV INFECTION
     Dates: start: 20050601

REACTIONS (11)
  - CSF GLUCOSE DECREASED [None]
  - CSF PRESSURE INCREASED [None]
  - CSF WHITE BLOOD CELL COUNT POSITIVE [None]
  - DIZZINESS [None]
  - HEAD INJURY [None]
  - HEADACHE [None]
  - LOSS OF CONSCIOUSNESS [None]
  - MENINGITIS CRYPTOCOCCAL [None]
  - NAUSEA [None]
  - PYREXIA [None]
  - SUBDURAL HAEMATOMA [None]
